FAERS Safety Report 10178351 (Version 2)
Quarter: 2014Q3

REPORT INFORMATION
  Report Type: Spontaneous
  Country: JP (occurrence: JP)
  Receive Date: 20140519
  Receipt Date: 20140814
  Transmission Date: 20150326
  Serious: Yes (Death, Hospitalization, Disabling, Other)
  Sender: FDA-Public Use
  Company Number: JP-ASTELLAS-2014US005497

PATIENT
  Age: 79 Year
  Sex: Male

DRUGS (9)
  1. LENDORMIN DAINIPPO [Concomitant]
     Active Substance: BROTIZOLAM
     Indication: LUNG ADENOCARCINOMA
     Dosage: 0.25 MG, ONCE DAILY
     Route: 048
     Dates: start: 20100220, end: 20131201
  2. URSO [Concomitant]
     Active Substance: URSODIOL
     Indication: LUNG ADENOCARCINOMA
     Route: 048
     Dates: start: 20130713, end: 20131201
  3. FLIVAS [Concomitant]
     Active Substance: NAFTOPIDIL
     Indication: LUNG ADENOCARCINOMA
     Route: 048
     Dates: start: 20100113, end: 20131201
  4. TARCEVA [Suspect]
     Active Substance: ERLOTINIB HYDROCHLORIDE
     Indication: LUNG ADENOCARCINOMA
     Route: 048
     Dates: start: 20130601, end: 20131202
  5. PROMAC                             /01312301/ [Concomitant]
     Active Substance: NITROFURANTOIN
     Indication: LUNG ADENOCARCINOMA
     Route: 048
     Dates: start: 20130723, end: 20131201
  6. AVOLVE [Concomitant]
     Active Substance: DUTASTERIDE
     Indication: LUNG ADENOCARCINOMA
     Dosage: 0.5 MG, ONCE DAILY
     Route: 048
     Dates: start: 20130309, end: 20131201
  7. TAKEPRON [Concomitant]
     Active Substance: LANSOPRAZOLE
     Indication: LUNG ADENOCARCINOMA
     Route: 048
     Dates: start: 20130723, end: 20131201
  8. BIO-THREE [Concomitant]
     Active Substance: HERBALS
     Indication: LUNG ADENOCARCINOMA
     Dosage: 2 DF, THRICE DAILY
     Route: 048
     Dates: start: 20130723, end: 20131201
  9. DAIKENCHUTO [Concomitant]
     Active Substance: HERBALS
     Indication: LUNG ADENOCARCINOMA
     Route: 048
     Dates: start: 20130723, end: 20131201

REACTIONS (3)
  - Oesophageal fistula [Not Recovered/Not Resolved]
  - Aorto-oesophageal fistula [Fatal]
  - Sepsis [Fatal]

NARRATIVE: CASE EVENT DATE: 20130806
